FAERS Safety Report 8105728-8 (Version None)
Quarter: 2012Q1

REPORT INFORMATION
  Report Type: 
  Country: None (occurrence: None)
  Receive Date: 20120201
  Receipt Date: 20120123
  Transmission Date: 20120608
  Serious: Yes (Hospitalization)
  Sender: FDA-Public Use
  Company Number: US-ASTRAZENECA-2011SE73339

PATIENT
  Age: 84 Year
  Sex: Female

DRUGS (7)
  1. CITRACAL [Concomitant]
  2. WELCHOL [Concomitant]
  3. MULTI-VITAMIN [Concomitant]
  4. SYNTHROID [Concomitant]
  5. MULTIPLE MEDICATION [Concomitant]
  6. VIMOVO [Suspect]
     Indication: ARTHRALGIA
     Dosage: 500/20
     Route: 048
  7. LISINOPRIL [Concomitant]

REACTIONS (8)
  - ATAXIA [None]
  - FALL [None]
  - VERTIGO [None]
  - ASTHENIA [None]
  - CONDITION AGGRAVATED [None]
  - DEHYDRATION [None]
  - VOMITING [None]
  - NAUSEA [None]
